FAERS Safety Report 16557003 (Version 1)
Quarter: 2019Q3

REPORT INFORMATION
  Report Type: Spontaneous
  Country: GB (occurrence: GB)
  Receive Date: 20190711
  Receipt Date: 20190711
  Transmission Date: 20191004
  Serious: Yes (Hospitalization)
  Sender: FDA-Public Use
  Company Number: GB-MYLANLABS-2018M1063313

PATIENT
  Age: 70 Year
  Sex: Female

DRUGS (1)
  1. CLOZARIL [Suspect]
     Active Substance: CLOZAPINE
     Indication: SCHIZOPHRENIA
     Dosage: UNK
     Route: 048
     Dates: start: 20061115, end: 20190626

REACTIONS (2)
  - Constipation [Unknown]
  - Differential white blood cell count abnormal [Recovering/Resolving]

NARRATIVE: CASE EVENT DATE: 20180821
